FAERS Safety Report 13346118 (Version 1)
Quarter: 2017Q1

REPORT INFORMATION
  Report Type: Spontaneous
  Country: US (occurrence: US)
  Receive Date: 20170317
  Receipt Date: 20170317
  Transmission Date: 20170428
  Serious: No
  Sender: FDA-Public Use
  Company Number: None

PATIENT
  Age: 52 Year
  Sex: Female
  Weight: 98.1 kg

DRUGS (20)
  1. PROPANOLOL [Concomitant]
     Active Substance: PROPRANOLOL HYDROCHLORIDE
  2. NITROBID OINTMENT [Concomitant]
  3. LIDOCAINE 5% PATCH [Suspect]
     Active Substance: LIDOCAINE
     Indication: BACK PAIN
     Dosage: ?          QUANTITY:1 PATCH(ES);?
     Route: 061
     Dates: start: 20161222, end: 20170122
  4. ZYOPTAN DROPS [Concomitant]
  5. ZOFRAN [Concomitant]
     Active Substance: ONDANSETRON HYDROCHLORIDE
  6. XIFAXAN [Concomitant]
     Active Substance: RIFAXIMIN
  7. VITAMIN D [Concomitant]
     Active Substance: CHOLECALCIFEROL
  8. METAMUCIL [Concomitant]
     Active Substance: PLANTAGO SEED
  9. PREDNISONE. [Concomitant]
     Active Substance: PREDNISONE
  10. LOW DOSE ERITHROMYCIN [Concomitant]
  11. PLAQUENIL [Concomitant]
     Active Substance: HYDROXYCHLOROQUINE SULFATE
  12. GRALISE [Concomitant]
     Active Substance: GABAPENTIN
  13. CPAP [Concomitant]
     Active Substance: DEVICE
  14. MIRALAX [Concomitant]
     Active Substance: POLYETHYLENE GLYCOL 3350
  15. BENLYSTA INFUSION [Concomitant]
  16. DEXILANT [Concomitant]
     Active Substance: DEXLANSOPRAZOLE
  17. VITAMIN D [Concomitant]
     Active Substance: CHOLECALCIFEROL
  18. NIFEDIPINE. [Concomitant]
     Active Substance: NIFEDIPINE
  19. FLEXERIL [Concomitant]
     Active Substance: CYCLOBENZAPRINE HYDROCHLORIDE
  20. CANE [Concomitant]

REACTIONS (6)
  - Product adhesion issue [None]
  - Product substitution issue [None]
  - Application site erythema [None]
  - Product shape issue [None]
  - Drug ineffective [None]
  - Application site irritation [None]

NARRATIVE: CASE EVENT DATE: 20161222
